FAERS Safety Report 21338313 (Version 11)
Quarter: 2023Q4

REPORT INFORMATION
  Report Type: Spontaneous
  Country: ES (occurrence: ES)
  Receive Date: 20220915
  Receipt Date: 20231017
  Transmission Date: 20240110
  Serious: Yes (Death, Other)
  Sender: FDA-Public Use
  Company Number: None

PATIENT
  Age: 39 Year
  Sex: Male

DRUGS (9)
  1. LINEZOLID [Suspect]
     Active Substance: LINEZOLID
     Indication: Pneumonia
     Dosage: 600 MG, 2X/DAY (600MG EVERY 12)
     Route: 042
     Dates: start: 20220818, end: 20220819
  2. TOCILIZUMAB [Suspect]
     Active Substance: TOCILIZUMAB
     Indication: COVID-19
     Dosage: 600 MG, SINGLE (UNIQUE DOSE, SINGLE DOSE)
     Route: 042
     Dates: start: 20220818, end: 20220818
  3. MEROPENEM [Suspect]
     Active Substance: MEROPENEM
     Indication: Pneumonia
     Dosage: 1 G, 3X/DAY (1.000 MG INJECTION EVERY 1G 8H)
     Route: 042
     Dates: start: 20220818
  4. TECLISTAMAB [Suspect]
     Active Substance: TECLISTAMAB
     Indication: Plasma cell myeloma refractory
     Dosage: UNK
     Route: 065
     Dates: start: 20220624, end: 20220812
  5. TECLISTAMAB [Suspect]
     Active Substance: TECLISTAMAB
     Dosage: 600 MG, 1X/DAY
     Route: 065
     Dates: start: 20220818, end: 20220818
  6. DEXAMETHASONE [Suspect]
     Active Substance: DEXAMETHASONE
     Indication: COVID-19
     Dosage: 6 MG, 1X/DAY (6MG EVERY 24H)
     Route: 042
     Dates: start: 20220818, end: 20220819
  7. DEXAMETHASONE [Suspect]
     Active Substance: DEXAMETHASONE
     Dosage: 4 MG, 1X/DAY
     Route: 042
     Dates: start: 20220818, end: 20220819
  8. ENOXAPARIN SODIUM [Suspect]
     Active Substance: ENOXAPARIN SODIUM
     Indication: Prophylaxis
     Dosage: 40 MG, DAILY (4,000 IU) (ENOXAPARIN SODIUM 40 MG (4,000 IU) INJECTION 0.4 ML 40MG 1 EVERY 24H)
     Route: 042
     Dates: start: 20220818
  9. ACETAMINOPHEN [Suspect]
     Active Substance: ACETAMINOPHEN
     Indication: Pyrexia
     Dosage: UNK
     Route: 042
     Dates: start: 20220818, end: 20220819

REACTIONS (1)
  - Hepatitis fulminant [Fatal]

NARRATIVE: CASE EVENT DATE: 20220820
